FAERS Safety Report 21410832 (Version 1)
Quarter: 2022Q4

REPORT INFORMATION
  Report Type: Spontaneous
  Country: US (occurrence: US)
  Receive Date: 20221005
  Receipt Date: 20221005
  Transmission Date: 20230112
  Serious: Yes (Other)
  Sender: FDA-Public Use
  Company Number: US-MYLANLABS-2022M1110350

PATIENT
  Age: 8 Month
  Sex: Female

DRUGS (5)
  1. SORAFENIB [Suspect]
     Active Substance: SORAFENIB
     Indication: Desmoid tumour
     Dosage: 200 MILLIGRAM/SQ. METER, BID SYSTEMIC ROUTE (EACH DOSE WAS ADMINISTERED BY DISSOLVING?.
     Route: 065
  2. SORAFENIB [Suspect]
     Active Substance: SORAFENIB
     Indication: Benign neoplasm of orbit
     Dosage: INITIALLY HELD, RESUMED LATER AND DISCONTINUED AGAIN
     Route: 065
  3. SORAFENIB [Suspect]
     Active Substance: SORAFENIB
     Dosage: UNK
     Route: 065
  4. SORAFENIB [Suspect]
     Active Substance: SORAFENIB
     Dosage: SORAFENIB STOPPED AGAIN DUE TO NEUTROPENIA AND RESUMED LATER AT DECREASED DOSE.
     Route: 065
  5. WATER [Concomitant]
     Active Substance: WATER
     Indication: Vehicle solution use
     Dosage: 30 MILLILITER EACH DOSE WAS ADMINISTERED BY DISSOLVING A SINGLE 200 MG SORAFENIB?
     Route: 065

REACTIONS (2)
  - Neutropenia [Recovering/Resolving]
  - Off label use [Recovering/Resolving]
